FAERS Safety Report 23199829 (Version 3)
Quarter: 2024Q1

REPORT INFORMATION
  Report Type: Spontaneous
  Country: US (occurrence: US)
  Receive Date: 20231117
  Receipt Date: 20240105
  Transmission Date: 20240410
  Serious: No
  Sender: FDA-Public Use
  Company Number: US-PFIZER INC-PV202300186792

PATIENT
  Age: 68 Year
  Sex: Female
  Weight: 72.3 kg

DRUGS (2)
  1. IBRANCE [Suspect]
     Active Substance: PALBOCICLIB
     Indication: Breast cancer metastatic
     Dosage: TAKE 1 TAB PO DAILY ON DAYS 1-21 OF 28 DAY CYCLE
     Route: 048
     Dates: start: 20230907
  2. FEMARA [Concomitant]
     Active Substance: LETROZOLE
     Indication: Breast cancer metastatic
     Dosage: UNK
     Dates: start: 20230907

REACTIONS (4)
  - Hypoacusis [Not Recovered/Not Resolved]
  - Gastrointestinal motility disorder [Unknown]
  - Brain fog [Not Recovered/Not Resolved]
  - Platelet count decreased [Unknown]
